FAERS Safety Report 4887157-3 (Version None)
Quarter: 2006Q1

REPORT INFORMATION
  Report Type: 
  Country: None (occurrence: None)
  Receive Date: 20060120
  Receipt Date: 20051005
  Transmission Date: 20060701
  Serious: Yes (Hospitalization, Disabling)
  Sender: FDA-Public Use
  Company Number: US-MERCK-0510USA03390

PATIENT
  Age: 34 Year
  Sex: Male
  Weight: 118 kg

DRUGS (2)
  1. VIOXX [Suspect]
     Indication: MUSCLE SPASMS
     Route: 048
     Dates: start: 20001221, end: 20040905
  2. VIOXX [Suspect]
     Indication: BACK PAIN
     Route: 048
     Dates: start: 20001221, end: 20040905

REACTIONS (5)
  - BACK DISORDER [None]
  - CORONARY ARTERY DISEASE [None]
  - LOWER RESPIRATORY TRACT INFECTION [None]
  - MUSCLE SPASMS [None]
  - MYOCARDIAL INFARCTION [None]
